FAERS Safety Report 4563933-1 (Version None)
Quarter: 2005Q1

REPORT INFORMATION
  Report Type: 
  Country: None (occurrence: None)
  Receive Date: 20050128
  Receipt Date: 20050117
  Transmission Date: 20050727
  Serious: Yes (Life-Threatening, Hospitalization)
  Sender: FDA-Public Use
  Company Number: BE-JNJFOC-20041206773

PATIENT
  Age: 47 Year
  Sex: Female

DRUGS (6)
  1. PROPULSID [Suspect]
     Route: 049
     Dates: start: 20031013, end: 20041001
  2. LACTULOSE [Concomitant]
  3. PROZAC [Concomitant]
     Indication: DEPRESSION
     Route: 049
  4. LESCOL [Concomitant]
     Indication: HYPERCHOLESTEROLAEMIA
     Route: 049
  5. SERTRALINE HCL [Concomitant]
     Indication: DEPRESSION
     Route: 049
  6. RISPERDAL [Concomitant]
     Indication: DEPRESSION
     Route: 049

REACTIONS (1)
  - ACUTE MYOCARDIAL INFARCTION [None]
